FAERS Safety Report 10161324 (Version 1)
Quarter: 2014Q2

REPORT INFORMATION
  Report Type: Report from Study
  Country: FR (occurrence: FR)
  Receive Date: 20140509
  Receipt Date: 20140509
  Transmission Date: 20141212
  Serious: Yes (Hospitalization)
  Sender: FDA-Public Use
  Company Number: FR-ROCHE-1392342

PATIENT
  Sex: Female

DRUGS (12)
  1. RITUXIMAB [Suspect]
     Indication: RHEUMATOID ARTHRITIS
     Route: 041
     Dates: start: 20070807
  2. RITUXIMAB [Suspect]
     Route: 041
     Dates: start: 20070821
  3. RITUXIMAB [Suspect]
     Route: 041
     Dates: start: 20100608
  4. RITUXIMAB [Suspect]
     Route: 041
     Dates: start: 20100622
  5. RITUXIMAB [Suspect]
     Route: 041
     Dates: start: 20110913
  6. LEFLUNOMIDE [Concomitant]
  7. METHYLPREDNISOLONE [Concomitant]
     Route: 065
  8. PARACETAMOL [Concomitant]
  9. INFLIXIMAB [Concomitant]
  10. TOCILIZUMAB [Concomitant]
     Route: 065
  11. CIMZIA [Concomitant]
  12. SIMPONI [Concomitant]

REACTIONS (11)
  - Foot deformity [Recovered/Resolved]
  - Infusion related reaction [Recovered/Resolved]
  - Bronchopneumopathy [Recovered/Resolved]
  - Neutropenia [Unknown]
  - Joint laxity [Not Recovered/Not Resolved]
  - Goitre [Not Recovered/Not Resolved]
  - Bronchitis [Not Recovered/Not Resolved]
  - Rhinitis [Not Recovered/Not Resolved]
  - Type 2 diabetes mellitus [Not Recovered/Not Resolved]
  - Foot operation [Recovered/Resolved]
  - Foot operation [Recovered/Resolved]
